FAERS Safety Report 5618961-1 (Version None)
Quarter: 2008Q1

REPORT INFORMATION
  Report Type: 
  Country: None (occurrence: None)
  Receive Date: 20080204
  Receipt Date: 20080123
  Transmission Date: 20080703
  Serious: Yes (Hospitalization, Other)
  Sender: FDA-Public Use
  Company Number: CHNY2008DE00653

PATIENT
  Age: 26 Year
  Sex: Female

DRUGS (1)
  1. PHENYLEPHRINE (NCH)(PHENYLEPHRINE) NASAL SPRAY [Suspect]

REACTIONS (9)
  - ANXIETY [None]
  - DELUSION [None]
  - DEPRESSION [None]
  - DYSPNOEA [None]
  - HALLUCINATION, TACTILE [None]
  - HALLUCINATION, VISUAL [None]
  - PANIC DISORDER [None]
  - PSYCHOTIC DISORDER [None]
  - SUICIDAL IDEATION [None]
